FAERS Safety Report 5603102-7 (Version None)
Quarter: 2008Q1

REPORT INFORMATION
  Report Type: 
  Country: None (occurrence: None)
  Receive Date: 20080125
  Receipt Date: 20070312
  Transmission Date: 20080703
  Serious: Yes (Other)
  Sender: FDA-Public Use
  Company Number: US-BRISTOL-MYERS SQUIBB COMPANY-13710462

PATIENT
  Age: 52 Year
  Sex: Female
  Weight: 112 kg

DRUGS (11)
  1. STADOL [Suspect]
     Indication: MIGRAINE
     Route: 045
     Dates: end: 20070223
  2. ACTOS [Concomitant]
  3. METFORMIN HCL [Concomitant]
  4. LISINOPRIL [Concomitant]
  5. HYDROCHLOROTHIAZIDE [Concomitant]
  6. PROMETHAZINE [Concomitant]
  7. SYNTHROID [Concomitant]
  8. SOMA [Concomitant]
  9. TIZANIDINE HCL [Concomitant]
  10. VALIUM [Concomitant]
  11. XANAX [Concomitant]

REACTIONS (5)
  - ARTHRITIS [None]
  - DEPENDENCE [None]
  - DIABETES MELLITUS [None]
  - FIBROMYALGIA [None]
  - HYPERTENSION [None]
